FAERS Safety Report 8486092-1 (Version None)
Quarter: 2012Q3

REPORT INFORMATION
  Report Type: 
  Country: None (occurrence: None)
  Receive Date: 20120703
  Receipt Date: 20120626
  Transmission Date: 20120928
  Serious: Yes (Hospitalization)
  Sender: FDA-Public Use
  Company Number: IT-BAXTER-2012BAX006507

PATIENT
  Sex: Male

DRUGS (2)
  1. KIOVIG [Suspect]
  2. KIOVIG [Suspect]
     Indication: DEMYELINATING POLYNEUROPATHY
     Route: 042
     Dates: start: 20120521, end: 20120521

REACTIONS (4)
  - HYPOTENSION [None]
  - BRADYCARDIA [None]
  - ERYTHEMA [None]
  - CHEST PAIN [None]
